FAERS Safety Report 18700265 (Version 1)
Quarter: 2021Q1

REPORT INFORMATION
  Report Type: Spontaneous
  Country: US (occurrence: US)
  Receive Date: 20210104
  Receipt Date: 20210104
  Transmission Date: 20210419
  Serious: Yes (Other)
  Sender: FDA-Public Use
  Company Number: None

PATIENT
  Age: 53 Year
  Sex: Male
  Weight: 102.4 kg

DRUGS (22)
  1. HEPARIN [Concomitant]
     Active Substance: HEPARIN SODIUM
     Dates: start: 20201210, end: 20201223
  2. MORPHINE [Concomitant]
     Active Substance: MORPHINE
     Dates: start: 20201206
  3. CEFEPIME [Concomitant]
     Active Substance: CEFEPIME HYDROCHLORIDE
     Dates: start: 20201206, end: 20201213
  4. METOPROLOL TARTRATE. [Concomitant]
     Active Substance: METOPROLOL TARTRATE
     Dates: start: 20201211, end: 20201230
  5. METRONIDAZOLE. [Concomitant]
     Active Substance: METRONIDAZOLE
     Dates: start: 20201125, end: 20201202
  6. REMDESIVIR. [Suspect]
     Active Substance: REMDESIVIR
     Indication: COVID-19
     Dosage: ?          OTHER FREQUENCY:ONCE;?
     Route: 042
     Dates: start: 20201124, end: 20201128
  7. ASCORBIC ACID. [Concomitant]
     Active Substance: ASCORBIC ACID
     Dates: start: 20201127, end: 20201227
  8. FUROSEMIDE. [Concomitant]
     Active Substance: FUROSEMIDE
     Dates: start: 20201216, end: 20201220
  9. MELATONIN [Concomitant]
     Active Substance: MELATONIN
     Dates: start: 20201202, end: 20201230
  10. MIDAZOLAM. [Concomitant]
     Active Substance: MIDAZOLAM
     Dates: start: 20201206, end: 20201211
  11. PROPOFOL. [Concomitant]
     Active Substance: PROPOFOL
     Dates: start: 20201206, end: 20201208
  12. ACETAZOLAMIDE. [Concomitant]
     Active Substance: ACETAZOLAMIDE
     Dates: start: 20201205, end: 20201206
  13. ACETYLCYSTEINE. [Concomitant]
     Active Substance: ACETYLCYSTEINE
     Dates: start: 20201223, end: 20201224
  14. INSULIN LISPRO [Concomitant]
     Active Substance: INSULIN LISPRO
  15. OXYCODONE AND ACETAMINOPHEN [Concomitant]
     Active Substance: ACETAMINOPHEN\OXYCODONE HYDROCHLORIDE
     Dates: start: 20201212, end: 20201218
  16. ASPIRIN. [Concomitant]
     Active Substance: ASPIRIN
     Dates: start: 20201216, end: 20201231
  17. ESMOLOL [Concomitant]
     Active Substance: ESMOLOL HYDROCHLORIDE
     Dates: start: 20201210, end: 20201211
  18. NOREPINEPHRINE. [Concomitant]
     Active Substance: NOREPINEPHRINE
     Dates: start: 20201206, end: 20201208
  19. PREDNISONE. [Concomitant]
     Active Substance: PREDNISONE
     Dates: start: 20201212, end: 20201220
  20. CHOLECALCIFEROL [Concomitant]
     Active Substance: CHOLECALCIFEROL
     Dates: start: 20201205, end: 20201231
  21. ENOXAPARIN [Concomitant]
     Active Substance: ENOXAPARIN
     Dates: start: 20201223, end: 20201230
  22. FENTANYL. [Concomitant]
     Active Substance: FENTANYL

REACTIONS (1)
  - Transaminases increased [None]

NARRATIVE: CASE EVENT DATE: 20201206
